FAERS Safety Report 11305881 (Version 1)
Quarter: 2015Q3

REPORT INFORMATION
  Report Type: Spontaneous
  Country: GB (occurrence: GB)
  Receive Date: 20150723
  Receipt Date: 20150723
  Transmission Date: 20151125
  Serious: Yes (Hospitalization)
  Sender: FDA-Public Use
  Company Number: GB-TEVA-578925ISR

PATIENT
  Sex: Female

DRUGS (1)
  1. SALMETEROL [Suspect]
     Active Substance: SALMETEROL

REACTIONS (1)
  - Food allergy [Unknown]
